FAERS Safety Report 5586539-4 (Version None)
Quarter: 2008Q1

REPORT INFORMATION
  Report Type: 
  Country: None (occurrence: None)
  Receive Date: 20080110
  Receipt Date: 20080107
  Transmission Date: 20080703
  Serious: Yes (Death, Hospitalization)
  Sender: FDA-Public Use
  Company Number: US-ASTRAZENECA-2008UW00460

PATIENT
  Age: 84 Year
  Sex: Female
  Weight: 56.1 kg

DRUGS (6)
  1. FULVESTRANT [Suspect]
     Indication: BREAST CANCER
     Dosage: EVERY 28 DAYS
     Route: 030
     Dates: start: 20061115, end: 20070110
  2. ANASTROZOLE [Suspect]
     Indication: BREAST CANCER
     Route: 048
     Dates: start: 20061115, end: 20070129
  3. ATENOLOL [Suspect]
  4. HYDROCHLOROTHIAZIDE [Suspect]
  5. OXYCODONE [Suspect]
  6. OXYCONTIN [Suspect]

REACTIONS (6)
  - ANOREXIA [None]
  - CEREBRAL ISCHAEMIA [None]
  - CONSTIPATION [None]
  - DEHYDRATION [None]
  - HYPOTENSION [None]
  - OSTEOMYELITIS [None]
